FAERS Safety Report 25208243 (Version 1)
Quarter: 2025Q2

REPORT INFORMATION
  Report Type: Spontaneous
  Country: FR (occurrence: FR)
  Receive Date: 20250417
  Receipt Date: 20250417
  Transmission Date: 20250716
  Serious: Yes (Hospitalization)
  Sender: CHEPLAPHARM
  Company Number: None

PATIENT
  Age: 70 Year
  Sex: Female

DRUGS (4)
  1. QUETIAPINE [Suspect]
     Active Substance: QUETIAPINE
     Indication: Mixed anxiety and depressive disorder
     Dosage: QUETIAPINE LP 0-0-1 SINCE 2020 ?DAILY DOSE: 300 MILLIGRAM
     Route: 048
     Dates: start: 2020
  2. Irbesartan; hydrochlorothiazide [Concomitant]
     Dosage: 150/12.5 : 1-0-0?DAILY DOSE: 1 DOSAGE FORM
  3. BISOPROLOL [Concomitant]
     Active Substance: BISOPROLOL
     Dosage: 1-0-0?DAILY DOSE: 1 DOSAGE FORM
  4. PANTOPRAZOLE [Concomitant]
     Active Substance: PANTOPRAZOLE
     Dosage: 0-0-1?DAILY DOSE: 1 DOSAGE FORM

REACTIONS (5)
  - Urinary retention [Recovered/Resolved]
  - Acute kidney injury [Recovered/Resolved]
  - Fall [Recovered/Resolved]
  - Confusional state [Recovered/Resolved]
  - Constipation [Recovered/Resolved]

NARRATIVE: CASE EVENT DATE: 20250305
